FAERS Safety Report 26157508 (Version 1)
Quarter: 2025Q4

REPORT INFORMATION
  Report Type: Spontaneous
  Country: US (occurrence: None)
  Receive Date: 20251212
  Receipt Date: 20251212
  Transmission Date: 20260118
  Serious: Yes (Death, Other)
  Sender: FDA-CTU
  Company Number: None

PATIENT
  Age: 77 Year
  Sex: Female
  Weight: 89.2 kg

DRUGS (1)
  1. MIRCERA [Suspect]
     Active Substance: METHOXY POLYETHYLENE GLYCOL-EPOETIN BETA
     Indication: Nephrogenic anaemia
     Dosage: 30 UG MICROGRAM(S) EVERY 4 WEEKS INTRAVENOUS BOLUS
     Route: 040
     Dates: start: 20251206, end: 20251206

REACTIONS (3)
  - Unresponsive to stimuli [None]
  - Dialysis [None]
  - Dyspnoea [None]

NARRATIVE: CASE EVENT DATE: 20251206
